FAERS Safety Report 24577511 (Version 1)
Quarter: 2024Q4

REPORT INFORMATION
  Report Type: Spontaneous
  Country: US (occurrence: US)
  Receive Date: 20241104
  Receipt Date: 20241104
  Transmission Date: 20250114
  Serious: No
  Sender: PERRIGO
  Company Number: US-PERRIGO-24US005938

PATIENT
  Age: 80 Year
  Sex: Male
  Weight: 69.841 kg

DRUGS (11)
  1. POLYETHYLENE GLYCOL 3350 [Suspect]
     Active Substance: POLYETHYLENE GLYCOL 3350
     Indication: Product used for unknown indication
     Dosage: UNKNOWN, UNKNOWN
     Route: 048
  2. POLYETHYLENE GLYCOL 3350 [Suspect]
     Active Substance: POLYETHYLENE GLYCOL 3350
     Indication: Constipation
     Dosage: 17 G, SINGLE
     Route: 048
     Dates: start: 20240605, end: 20240605
  3. ASPIRIN [Concomitant]
     Active Substance: ASPIRIN
     Indication: Cardiovascular disorder
     Dosage: 81 MG, UNKNOWN
     Route: 065
     Dates: start: 2009
  4. METOPROLOL [Concomitant]
     Active Substance: METOPROLOL
     Indication: Cardiovascular disorder
     Dosage: UNKNOWN, UNKNOWN
     Route: 065
     Dates: start: 2009
  5. ATORVASTATIN [Concomitant]
     Active Substance: ATORVASTATIN
     Indication: Cardiovascular disorder
     Dosage: UNKNOWN, UNKNOWN
     Route: 065
     Dates: start: 2009
  6. LOSARTAN [Concomitant]
     Active Substance: LOSARTAN
     Indication: Cardiovascular disorder
     Dosage: UNKNOWN, UNKNOWN
     Route: 065
     Dates: start: 2009
  7. ISOSORBIDE [Concomitant]
     Active Substance: ISOSORBIDE
     Indication: Cardiovascular disorder
     Dosage: UNKNOWN, UNKNOWN
     Route: 065
     Dates: start: 2018
  8. NIFEDIPINE [Concomitant]
     Active Substance: NIFEDIPINE
     Indication: Blood pressure abnormal
     Dosage: UNKNOWN, UNKNOWN
     Route: 065
     Dates: start: 2018
  9. GABAPENTIN [Concomitant]
     Active Substance: GABAPENTIN
     Indication: Neuropathy peripheral
     Dosage: UNKNOWN, UNKNOWN
     Route: 065
     Dates: start: 2018
  10. CYANOCOBALAMIN [Concomitant]
     Active Substance: CYANOCOBALAMIN
     Indication: Crohn^s disease
     Dosage: UNKNOWN, UNKNOWN
     Route: 065
     Dates: start: 2018
  11. MAGNESIUM [Concomitant]
     Active Substance: MAGNESIUM
     Indication: Supplementation therapy
     Dosage: UNKNOWN, UNKNOWN
     Route: 065
     Dates: start: 2018

REACTIONS (1)
  - Defaecation urgency [Recovered/Resolved]

NARRATIVE: CASE EVENT DATE: 20240605
